FAERS Safety Report 13669692 (Version 2)
Quarter: 2017Q2

REPORT INFORMATION
  Report Type: Spontaneous
  Country: US (occurrence: US)
  Receive Date: 20170620
  Receipt Date: 20170630
  Transmission Date: 20170830
  Serious: Yes (Hospitalization, Other)
  Sender: FDA-Public Use
  Company Number: US-AMGEN-USASP2017090374

PATIENT
  Sex: Female
  Weight: 117 kg

DRUGS (2)
  1. NPLATE [Suspect]
     Active Substance: ROMIPLOSTIM
     Indication: PRODUCT USED FOR UNKNOWN INDICATION
     Dosage: 500 MCG, UNK
     Route: 065
  2. GAMMA GLOBULIN [Concomitant]
     Active Substance: IMMUNE GLOBULIN NOS
     Indication: IMMUNE THROMBOCYTOPENIC PURPURA
     Dosage: 110 G, BID

REACTIONS (4)
  - Migraine [Unknown]
  - Platelet count abnormal [Unknown]
  - Mucosal haemorrhage [Unknown]
  - Splenectomy [Unknown]

NARRATIVE: CASE EVENT DATE: 20170530
